FAERS Safety Report 10229221 (Version 3)
Quarter: 2015Q4

REPORT INFORMATION
  Report Type: Report from Study
  Country: US (occurrence: US)
  Receive Date: 20140611
  Receipt Date: 20151110
  Transmission Date: 20160304
  Serious: Yes (Hospitalization)
  Sender: FDA-Public Use
  Company Number: US-ROCHE-1363063

PATIENT
  Sex: Female

DRUGS (20)
  1. GLYBURIDE. [Concomitant]
     Active Substance: GLYBURIDE
     Route: 048
  2. AVASTIN [Suspect]
     Active Substance: BEVACIZUMAB
     Indication: DIABETIC RETINAL OEDEMA
     Dosage: OD
     Route: 050
     Dates: start: 20120831
  3. SIMVASTATIN. [Concomitant]
     Active Substance: SIMVASTATIN
     Route: 048
  4. TIMOLOL. [Concomitant]
     Active Substance: TIMOLOL
     Route: 065
  5. LUCENTIS [Suspect]
     Active Substance: RANIBIZUMAB
     Dosage: OD
     Route: 050
     Dates: start: 20130618
  6. AMLODIPINE [Concomitant]
     Active Substance: AMLODIPINE BESYLATE
     Route: 048
  7. HYDROCHLOROTHIAZIDE. [Concomitant]
     Active Substance: HYDROCHLOROTHIAZIDE
     Route: 048
  8. BRIMONIDINE [Concomitant]
     Active Substance: BRIMONIDINE TARTRATE
     Route: 065
  9. LISINOPRIL. [Concomitant]
     Active Substance: LISINOPRIL
     Route: 065
  10. METOCLOPRAMIDE. [Concomitant]
     Active Substance: METOCLOPRAMIDE
     Route: 065
  11. LUCENTIS [Suspect]
     Active Substance: RANIBIZUMAB
     Dosage: OD
     Route: 050
     Dates: start: 20130819
  12. LUCENTIS [Suspect]
     Active Substance: RANIBIZUMAB
     Dosage: OD
     Route: 050
     Dates: start: 20140321
  13. ASPIRIN. [Concomitant]
     Active Substance: ASPIRIN
     Route: 048
  14. METAMUCIL [Concomitant]
     Active Substance: PLANTAGO SEED
     Dosage: POWDER
     Route: 048
  15. LUCENTIS [Suspect]
     Active Substance: RANIBIZUMAB
     Dosage: OD
     Route: 050
     Dates: start: 20140117
  16. AVASTIN [Suspect]
     Active Substance: BEVACIZUMAB
     Dosage: OD
     Route: 050
     Dates: start: 20120928
  17. AVASTIN [Suspect]
     Active Substance: BEVACIZUMAB
     Dosage: OD
     Route: 050
     Dates: start: 20130121
  18. LUCENTIS [Suspect]
     Active Substance: RANIBIZUMAB
     Indication: DIABETIC RETINAL OEDEMA
     Dosage: OD
     Route: 050
     Dates: start: 20130415
  19. AVASTIN [Suspect]
     Active Substance: BEVACIZUMAB
     Dosage: OD
     Route: 050
     Dates: start: 20121026
  20. TYLENOL [Concomitant]
     Active Substance: ACETAMINOPHEN
     Route: 048

REACTIONS (5)
  - Retinal haemorrhage [Unknown]
  - Pneumonia [Unknown]
  - Retinal vascular disorder [Unknown]
  - Macular ischaemia [Unknown]
  - Therapeutic product ineffective [Unknown]
